FAERS Safety Report 18739488 (Version 1)
Quarter: 2021Q1

REPORT INFORMATION
  Report Type: Spontaneous
  Country: US (occurrence: US)
  Receive Date: 20210114
  Receipt Date: 20210114
  Transmission Date: 20210419
  Serious: Yes (Other)
  Sender: FDA-Public Use
  Company Number: US-ROCHE-2748803

PATIENT
  Age: 54 Year
  Sex: Female

DRUGS (4)
  1. TUKYSA [Suspect]
     Active Substance: TUCATINIB
     Indication: PRODUCT USED FOR UNKNOWN INDICATION
     Route: 065
  2. XELODA [Suspect]
     Active Substance: CAPECITABINE
     Indication: PRODUCT USED FOR UNKNOWN INDICATION
     Route: 065
  3. XELODA [Suspect]
     Active Substance: CAPECITABINE
     Dosage: RESTARTED : 17?DEC?2020 AT LOWER DOSES
     Route: 065
     Dates: start: 20201217
  4. TUKYSA [Suspect]
     Active Substance: TUCATINIB
     Dosage: RESTARTED ON 17?DEC?2020
     Route: 065
     Dates: start: 20201217

REACTIONS (2)
  - Tumour haemorrhage [Unknown]
  - Hepatic enzyme increased [Unknown]

NARRATIVE: CASE EVENT DATE: 20201230
